FAERS Safety Report 10089946 (Version 1)
Quarter: 2014Q2

REPORT INFORMATION
  Report Type: Spontaneous
  Country: US (occurrence: US)
  Receive Date: 20140421
  Receipt Date: 20140421
  Transmission Date: 20141212
  Serious: No
  Sender: FDA-Public Use
  Company Number: US-ABBVIE-13P-163-1169991-00

PATIENT
  Age: 7 Year
  Sex: Female

DRUGS (1)
  1. LUPRON DEPOT-PED (3 MONTH) [Suspect]
     Indication: PRECOCIOUS PUBERTY
     Route: 050

REACTIONS (1)
  - Injection site nodule [Recovered/Resolved]
